FAERS Safety Report 22377581 (Version 1)
Quarter: 2023Q2

REPORT INFORMATION
  Report Type: Spontaneous
  Country: US (occurrence: US)
  Receive Date: 20230529
  Receipt Date: 20230529
  Transmission Date: 20230721
  Serious: No
  Sender: FDA-Public Use
  Company Number: ALC2022US005354

PATIENT
  Sex: Male

DRUGS (1)
  1. SIMBRINZA [Suspect]
     Active Substance: BRIMONIDINE TARTRATE\BRINZOLAMIDE
     Indication: Product used for unknown indication
     Dosage: 1 DRP, BID, EACH EYE
     Route: 047

REACTIONS (2)
  - Somnolence [Recovered/Resolved]
  - Dizziness [Recovered/Resolved]

NARRATIVE: CASE EVENT DATE: 20221110
